FAERS Safety Report 7716492-6 (Version None)
Quarter: 2011Q3

REPORT INFORMATION
  Report Type: 
  Country: None (occurrence: None)
  Receive Date: 20110829
  Receipt Date: 20110822
  Transmission Date: 20111222
  Serious: Yes (Hospitalization)
  Sender: FDA-Public Use
  Company Number: US-B.I. PHARMACEUTICALS,INC./RIDGEFIELD-2011-BP-17643BP

PATIENT
  Age: 75 Year
  Sex: Male
  Weight: 97.5 kg

DRUGS (18)
  1. HUMULIN 70/30 [Concomitant]
     Dates: start: 20080101
  2. LOTREL [Concomitant]
     Dates: start: 20100507
  3. METOPROLOL TARTRATE [Concomitant]
     Dates: start: 20040101
  4. AMLODIPINE [Concomitant]
     Dates: start: 20110101
  5. FISH OIL [Concomitant]
     Dates: start: 20080101
  6. FOLIC ACID [Concomitant]
     Dates: start: 20020101
  7. METFORMIN HYDROCHLORIDE [Concomitant]
     Dates: start: 20110503
  8. VITAMIN E [Concomitant]
     Dates: start: 20080101
  9. UNSPECIFIED PROBIOTIC [Concomitant]
  10. PRADAXA [Suspect]
     Indication: HYPERTENSION
     Route: 048
     Dates: start: 20110503, end: 20110505
  11. SOTALOL HYDROCHLORIDE [Suspect]
     Indication: HYPERTENSION
     Route: 048
     Dates: start: 20110503, end: 20110505
  12. ACETYLSALICYLIC ACID [Concomitant]
     Dates: start: 20080101
  13. CELECOXIB [Suspect]
     Indication: OSTEOARTHRITIS
     Dates: start: 20100414, end: 20110505
  14. CARVEDILOL [Concomitant]
     Dates: start: 20110503
  15. ESOMEPRAZOLE MAGNESIUM [Concomitant]
     Indication: PROPHYLAXIS
     Dates: start: 20100414, end: 20110505
  16. CO Q10 [Concomitant]
     Dates: start: 20100201
  17. GEMFIBROZIL [Concomitant]
     Dates: start: 20020101
  18. SIMAVASTATIN [Concomitant]
     Dates: start: 20020101

REACTIONS (6)
  - ATRIAL FLUTTER [None]
  - RENAL FAILURE ACUTE [None]
  - CARDIAC FAILURE CONGESTIVE [None]
  - TACHYCARDIA [None]
  - RENAL FAILURE CHRONIC [None]
  - ISCHAEMIC CARDIOMYOPATHY [None]
